FAERS Safety Report 7716325-8 (Version None)
Quarter: 2011Q3

REPORT INFORMATION
  Report Type: 
  Country: None (occurrence: None)
  Receive Date: 20110829
  Receipt Date: 20110818
  Transmission Date: 20111222
  Serious: Yes (Other)
  Sender: FDA-Public Use
  Company Number: PHHY2010AT87210

PATIENT
  Age: 82 Year
  Weight: 61 kg

DRUGS (1)
  1. ZOMETA [Suspect]
     Indication: PROSTATE CANCER
     Dosage: 1 DF, QMO (1X/MONTH)
     Dates: start: 20050101, end: 20101201

REACTIONS (2)
  - PSORIATIC ARTHROPATHY [None]
  - CREATININE RENAL CLEARANCE DECREASED [None]
